FAERS Safety Report 23970325 (Version 1)
Quarter: 2024Q2

REPORT INFORMATION
  Report Type: Spontaneous
  Country: US (occurrence: US)
  Receive Date: 20240613
  Receipt Date: 20240613
  Transmission Date: 20240716
  Serious: Yes (Hospitalization, Other)
  Sender: FDA-Public Use
  Company Number: US-009507513-2406USA003456

PATIENT
  Age: 56 Year
  Sex: Female

DRUGS (3)
  1. KEYTRUDA [Suspect]
     Active Substance: PEMBROLIZUMAB
     Indication: Triple negative breast cancer
     Dosage: 4 CYCLES, LAST DOSE 35 DAYS PRIOR TO EMERGENCY DEPARTMENT
  2. CARBOPLATIN [Suspect]
     Active Substance: CARBOPLATIN
     Indication: Triple negative breast cancer
     Dosage: 4 CYCLES, LAST DOSE 28 DAYS PRIOR TO EMERGENCY DEPARTMENT
  3. PACLITAXEL [Suspect]
     Active Substance: PACLITAXEL
     Indication: Triple negative breast cancer
     Dosage: 4 CYCLES, LAST DOSE 28 DAYS PRIOR TO EMERGENCY DEPARTMENT

REACTIONS (1)
  - Immune-mediated adrenal insufficiency [Recovering/Resolving]
